FAERS Safety Report 25654076 (Version 1)
Quarter: 2025Q3

REPORT INFORMATION
  Report Type: Spontaneous
  Country: US (occurrence: US)
  Receive Date: 20250807
  Receipt Date: 20250807
  Transmission Date: 20251021
  Serious: Yes (Other)
  Sender: MYLAN
  Company Number: US-MYLANLABS-2025M1066637

PATIENT
  Age: 69 Year
  Sex: Male

DRUGS (12)
  1. AMLODIPINE [Suspect]
     Active Substance: AMLODIPINE BESYLATE
     Indication: Hypertension
     Dosage: 5 MILLIGRAM, QD
  2. AMLODIPINE [Suspect]
     Active Substance: AMLODIPINE BESYLATE
     Dosage: 5 MILLIGRAM, QD
     Route: 065
  3. AMLODIPINE [Suspect]
     Active Substance: AMLODIPINE BESYLATE
     Dosage: 5 MILLIGRAM, QD
     Route: 065
  4. AMLODIPINE [Suspect]
     Active Substance: AMLODIPINE BESYLATE
     Dosage: 5 MILLIGRAM, QD
  5. LOSARTAN [Suspect]
     Active Substance: LOSARTAN
     Indication: Hypertension
     Dosage: 50 MILLIGRAM, QD
  6. LOSARTAN [Suspect]
     Active Substance: LOSARTAN
     Dosage: 50 MILLIGRAM, QD
     Route: 065
  7. LOSARTAN [Suspect]
     Active Substance: LOSARTAN
     Dosage: 50 MILLIGRAM, QD
     Route: 065
  8. LOSARTAN [Suspect]
     Active Substance: LOSARTAN
     Dosage: 50 MILLIGRAM, QD
  9. CARVEDILOL [Suspect]
     Active Substance: CARVEDILOL
     Indication: Hypertension
     Dosage: 25 MILLIGRAM, BID
  10. CARVEDILOL [Suspect]
     Active Substance: CARVEDILOL
     Dosage: 25 MILLIGRAM, BID
     Route: 065
  11. CARVEDILOL [Suspect]
     Active Substance: CARVEDILOL
     Dosage: 25 MILLIGRAM, BID
     Route: 065
  12. CARVEDILOL [Suspect]
     Active Substance: CARVEDILOL
     Dosage: 25 MILLIGRAM, BID

REACTIONS (3)
  - Hypotension [Recovering/Resolving]
  - Chronic kidney disease [Recovering/Resolving]
  - Disease progression [Recovering/Resolving]
